FAERS Safety Report 4880313-X (Version None)
Quarter: 2006Q1

REPORT INFORMATION
  Report Type: 
  Country: None (occurrence: None)
  Receive Date: 20060113
  Receipt Date: 20050930
  Transmission Date: 20060701
  Serious: Yes (Other)
  Sender: FDA-Public Use
  Company Number: PHEH2005US10929

PATIENT
  Age: 71 Year
  Sex: Female
  Weight: 68.48 kg

DRUGS (7)
  1. AREDIA [Suspect]
     Indication: METASTASES TO BONE
     Dosage: 90 MG X 3 DOSES
     Dates: start: 20020103, end: 20020228
  2. AREDIA [Suspect]
     Dosage: 90 MG, Q3MO
     Dates: start: 20040706, end: 20051212
  3. ZOMETA [Suspect]
     Indication: METASTASES TO BONE
     Dosage: 4 MG, QMO
     Dates: start: 20020328, end: 20040608
  4. VICODIN [Concomitant]
  5. SONATA [Concomitant]
  6. OXYIR [Concomitant]
  7. ARIMIDEX [Concomitant]
     Indication: BREAST CANCER
     Dosage: 1 MG, QD
     Dates: start: 20011220

REACTIONS (15)
  - ANAEMIA [None]
  - BACTERIAL INFECTION [None]
  - BONE DEBRIDEMENT [None]
  - BONE DISORDER [None]
  - BONE LESION [None]
  - DENTAL TREATMENT [None]
  - DIABETES MELLITUS [None]
  - ERYTHEMA [None]
  - GINGIVITIS [None]
  - IMPAIRED HEALING [None]
  - OSTEONECROSIS [None]
  - PAIN IN JAW [None]
  - SOFT TISSUE INFECTION [None]
  - TOOTH DECALCIFICATION [None]
  - TOOTH EXTRACTION [None]
